FAERS Safety Report 25868734 (Version 1)
Quarter: 2025Q4

REPORT INFORMATION
  Report Type: Spontaneous
  Country: US (occurrence: US)
  Receive Date: 20251001
  Receipt Date: 20251001
  Transmission Date: 20260117
  Serious: No
  Sender: GILEAD
  Company Number: US-GILEAD-2025-0729932

PATIENT

DRUGS (1)
  1. DESCOVY [Suspect]
     Active Substance: EMTRICITABINE\TENOFOVIR ALAFENAMIDE FUMARATE
     Indication: Prophylaxis against HIV infection
     Route: 065

REACTIONS (6)
  - Gastrooesophageal reflux disease [Unknown]
  - Stress [Unknown]
  - Impaired work ability [Unknown]
  - Poor quality sleep [Unknown]
  - Ill-defined disorder [Unknown]
  - Product use complaint [Unknown]
